FAERS Safety Report 9800680 (Version 1)
Quarter: 2014Q1

REPORT INFORMATION
  Report Type: Spontaneous
  Country: US (occurrence: US)
  Receive Date: 20140107
  Receipt Date: 20140107
  Transmission Date: 20141002
  Serious: No
  Sender: FDA-Public Use
  Company Number: US-009507513-1401USA001562

PATIENT
  Sex: Female

DRUGS (1)
  1. NUVARING [Suspect]
     Route: 067

REACTIONS (4)
  - Discomfort [Unknown]
  - Pain [Unknown]
  - Gait disturbance [Unknown]
  - Dysstasia [Unknown]
